FAERS Safety Report 3642954 (Version 5)
Quarter: 2020Q3

REPORT INFORMATION
  Report Type: Report from Study
  Country: US (occurrence: US)
  Receive Date: 20010418
  Receipt Date: 20090619
  Transmission Date: 20201105
  Serious: Yes (Life-Threatening, Hospitalization)
  Sender: FDA-Public Use
  Company Number: NSADSS2001010186

PATIENT
  Age: 59 Year
  Sex: Female
  Weight: 109.77 kg

DRUGS (29)
  1. ALPRAZOLAM. [Concomitant]
     Active Substance: ALPRAZOLAM
     Indication: ANXIETY
     Route: 048
  2. ALLOPURINOL. [Concomitant]
     Active Substance: ALLOPURINOL
     Indication: GOUT
     Route: 048
  3. TOPROL XL [Concomitant]
     Active Substance: METOPROLOL SUCCINATE
     Route: 065
  4. PERCOCET [Concomitant]
     Active Substance: ACETAMINOPHEN\OXYCODONE HYDROCHLORIDE
     Indication: PAIN
     Route: 048
  5. ZESTRIL [Concomitant]
     Active Substance: LISINOPRIL
     Route: 048
  6. SOMA [Concomitant]
     Active Substance: CARISOPRODOL
     Indication: MUSCLE SPASMS
     Route: 048
  7. TOPROL XL [Concomitant]
     Active Substance: METOPROLOL SUCCINATE
     Indication: HYPERTENSION
     Route: 065
  8. LASIX [Concomitant]
     Active Substance: FUROSEMIDE
     Indication: BLOOD PRESSURE MEASUREMENT
     Dosage: TAKEN IN THE MORNING
     Route: 065
  9. ZESTRIL [Concomitant]
     Active Substance: LISINOPRIL
     Route: 048
  10. ZESTRIL [Concomitant]
     Active Substance: LISINOPRIL
     Route: 048
  11. ZESTRIL [Concomitant]
     Active Substance: LISINOPRIL
     Route: 048
  12. ZESTRIL [Concomitant]
     Active Substance: LISINOPRIL
     Indication: HYPERTENSION
     Route: 048
  13. ULTRASE [Concomitant]
     Active Substance: PANCRELIPASE
     Indication: GASTROINTESTINAL DISORDER
     Dosage: 1?2 TAKEN WITH MEALS
     Route: 065
  14. LORCET [Concomitant]
     Active Substance: ACETAMINOPHEN\HYDROCODONE BITARTRATE
     Indication: THERAPEUTIC RESPONSE DECREASED
     Route: 065
  15. LANTUS [Concomitant]
     Active Substance: INSULIN GLARGINE
     Indication: DIABETES MELLITUS
     Dosage: TAKEN AT BEDTIME
     Route: 065
  16. CISAPRIDE [Suspect]
     Active Substance: CISAPRIDE
     Route: 048
     Dates: start: 20010112
  17. MICARDIS [Concomitant]
     Active Substance: TELMISARTAN
     Indication: HYPERTENSION
     Route: 048
  18. SYNTHROID [Concomitant]
     Active Substance: LEVOTHYROXINE SODIUM
     Indication: HYPOTHYROIDISM
     Route: 048
  19. AMBIEN [Concomitant]
     Active Substance: ZOLPIDEM TARTRATE
     Indication: INSOMNIA
     Dosage: TAKEN AT BEDTIME
     Route: 048
  20. OXYCONTIN [Concomitant]
     Active Substance: OXYCODONE HYDROCHLORIDE
     Route: 048
  21. OXYCONTIN [Concomitant]
     Active Substance: OXYCODONE HYDROCHLORIDE
     Indication: PAIN
     Route: 048
  22. COUMADIN [Concomitant]
     Active Substance: WARFARIN SODIUM
     Indication: PROPHYLAXIS
     Dosage: 2.5MG ODD DAYS, 5.0MG EVEN DAYS
     Route: 048
  23. ZESTRIL [Concomitant]
     Active Substance: LISINOPRIL
     Route: 048
  24. ZESTRIL [Concomitant]
     Active Substance: LISINOPRIL
     Route: 048
  25. PRILOSEC [Concomitant]
     Active Substance: OMEPRAZOLE MAGNESIUM
     Indication: GASTROOESOPHAGEAL REFLUX DISEASE
     Route: 048
  26. CISAPRIDE [Suspect]
     Active Substance: CISAPRIDE
     Indication: DIABETIC GASTROPARESIS
     Route: 048
     Dates: start: 20010112
  27. COUMADIN [Concomitant]
     Active Substance: WARFARIN SODIUM
     Route: 048
  28. METAMUCIL [Concomitant]
     Indication: CONSTIPATION
     Route: 048
  29. POTASSIUM [Concomitant]
     Active Substance: POTASSIUM
     Indication: ELECTROLYTE SUBSTITUTION THERAPY
     Dosage: TAKEN IN THE MORNING
     Route: 065

REACTIONS (2)
  - Electrocardiogram QT prolonged [Recovered/Resolved]
  - Hospitalisation [Recovered/Resolved]

NARRATIVE: CASE EVENT DATE: 20010322
